FAERS Safety Report 14105879 (Version 2)
Quarter: 2017Q4

REPORT INFORMATION
  Report Type: Report from Study
  Country: CA (occurrence: CA)
  Receive Date: 20171019
  Receipt Date: 20171110
  Transmission Date: 20180321
  Serious: Yes (Other)
  Sender: FDA-Public Use
  Company Number: CA-GILEAD-2017-0291973

PATIENT
  Age: 64 Year
  Sex: Male

DRUGS (2)
  1. SOFOSBUVIR [Suspect]
     Active Substance: SOFOSBUVIR
     Indication: CHRONIC HEPATITIS C
     Dosage: 400 MG, UNK
     Route: 048
     Dates: start: 20160524, end: 20161108
  2. RIBAVIRIN. [Suspect]
     Active Substance: RIBAVIRIN
     Indication: CHRONIC HEPATITIS C
     Dosage: UNK
     Route: 048
     Dates: start: 20160524, end: 201611

REACTIONS (5)
  - Treatment failure [Unknown]
  - Immune system disorder [Not Recovered/Not Resolved]
  - Drug intolerance [Recovered/Resolved]
  - Amnesia [Unknown]
  - Pneumonia [Not Recovered/Not Resolved]
